FAERS Safety Report 8210949-X (Version None)
Quarter: 2012Q1

REPORT INFORMATION
  Report Type: 
  Country: None (occurrence: None)
  Receive Date: 20120315
  Receipt Date: 20120307
  Transmission Date: 20120608
  Serious: Yes (Hospitalization)
  Sender: FDA-Public Use
  Company Number: US-BAYER-2012-023560

PATIENT
  Age: 15 Year
  Sex: Female
  Weight: 93 kg

DRUGS (6)
  1. TYLENOL [Concomitant]
     Indication: HEADACHE
  2. MORPHINE [Concomitant]
     Indication: PAIN
  3. KETOROLAC TROMETHAMINE [Concomitant]
     Indication: PAIN
  4. VICODIN [Concomitant]
     Indication: PAIN
  5. YASMIN [Suspect]
     Indication: DYSMENORRHOEA
     Dosage: UNK UNK, QD
  6. IBUPROFEN [Concomitant]
     Dosage: OCCASIONAL USE
     Route: 048

REACTIONS (1)
  - PULMONARY EMBOLISM [None]
